FAERS Safety Report 6259219-X (Version None)
Quarter: 2009Q3

REPORT INFORMATION
  Report Type: 
  Country: None (occurrence: None)
  Receive Date: 20090707
  Receipt Date: 20090617
  Transmission Date: 20100115
  Serious: Yes (Hospitalization)
  Sender: FDA-Public Use
  Company Number: NZ-AVENTIS-200916438GDDC

PATIENT
  Age: 56 Year
  Sex: Female

DRUGS (5)
  1. LEFLUNOMIDE [Suspect]
     Dates: end: 20050201
  2. METHOTREXATE [Suspect]
     Dates: end: 20050201
  3. OMEPRAZOLE [Concomitant]
  4. CALCIUM CARBONATE [Concomitant]
  5. FOLIC ACID [Concomitant]

REACTIONS (3)
  - DYSPNOEA [None]
  - HYPOXIA [None]
  - PNEUMONITIS [None]
